FAERS Safety Report 25713032 (Version 3)
Quarter: 2025Q4

REPORT INFORMATION
  Report Type: Report from Study
  Country: CA (occurrence: CA)
  Receive Date: 20250821
  Receipt Date: 20251017
  Transmission Date: 20260117
  Serious: Yes (Other)
  Sender: ABBVIE
  Company Number: CA-ABBVIE-6424294

PATIENT
  Age: 67 Year
  Sex: Female

DRUGS (9)
  1. VYALEV [Suspect]
     Active Substance: FOSCARBIDOPA\FOSLEVODOPA
     Indication: Product used for unknown indication
     Route: 058
     Dates: start: 20250211
  2. VYALEV [Suspect]
     Active Substance: FOSCARBIDOPA\FOSLEVODOPA
     Dosage: LOW: 0.24 BASE: 0.42 HIGH: 0.45
     Route: 058
     Dates: start: 2025
  3. WELLBUTRIN [Concomitant]
     Active Substance: BUPROPION HYDROCHLORIDE
     Indication: Product used for unknown indication
  4. LEVODOPA [Concomitant]
     Active Substance: LEVODOPA
     Indication: Product used for unknown indication
  5. Sele [Concomitant]
     Indication: Product used for unknown indication
  6. ESCITALOPRAM [Concomitant]
     Active Substance: ESCITALOPRAM OXALATE
     Indication: Product used for unknown indication
  7. NAPROXEN [Concomitant]
     Active Substance: NAPROXEN
     Indication: Product used for unknown indication
  8. VITAMIN D [Concomitant]
     Active Substance: VITAMIN D NOS
     Indication: Product used for unknown indication
  9. MAGNESIUM [Concomitant]
     Active Substance: MAGNESIUM
     Indication: Product used for unknown indication

REACTIONS (9)
  - Surgery [Unknown]
  - Catheter site irritation [Recovered/Resolved]
  - Freezing phenomenon [Unknown]
  - Fatigue [Unknown]
  - Catheter site pain [Unknown]
  - Dizziness [Unknown]
  - Presyncope [Recovering/Resolving]
  - Catheter site swelling [Unknown]
  - Catheter site pruritus [Unknown]

NARRATIVE: CASE EVENT DATE: 20250101
